FAERS Safety Report 15113968 (Version 2)
Quarter: 2018Q3

REPORT INFORMATION
  Report Type: Spontaneous
  Country: US (occurrence: US)
  Receive Date: 20180706
  Receipt Date: 20180716
  Transmission Date: 20181010
  Serious: Yes (Hospitalization)
  Sender: FDA-Public Use
  Company Number: US-ROCHE-2150093

PATIENT
  Age: 70 Year
  Sex: Female

DRUGS (3)
  1. OCREVUS [Suspect]
     Active Substance: OCRELIZUMAB
     Dosage: DOSE 3
     Route: 042
     Dates: start: 20171228
  2. OCREVUS [Suspect]
     Active Substance: OCRELIZUMAB
     Dosage: DOSE 2
     Route: 042
     Dates: start: 20170711
  3. OCREVUS [Suspect]
     Active Substance: OCRELIZUMAB
     Indication: PRIMARY PROGRESSIVE MULTIPLE SCLEROSIS
     Dosage: DOSE 1
     Route: 042
     Dates: start: 20170628

REACTIONS (2)
  - Meningitis [Recovered/Resolved]
  - Encephalitis [Recovered/Resolved]
